FAERS Safety Report 8309106-8 (Version None)
Quarter: 2012Q2

REPORT INFORMATION
  Report Type: 
  Country: None (occurrence: None)
  Receive Date: 20120424
  Receipt Date: 20120417
  Transmission Date: 20120825
  Serious: Yes (Other)
  Sender: FDA-Public Use
  Company Number: US-PFIZER INC-2012002404

PATIENT
  Sex: Female

DRUGS (1)
  1. VIAGRA [Suspect]
     Indication: PERIPHERAL VASCULAR DISORDER
     Dosage: UNK

REACTIONS (3)
  - SEPTIC EMBOLUS [None]
  - AORTIC ARTERIOSCLEROSIS [None]
  - DRUG INEFFECTIVE FOR UNAPPROVED INDICATION [None]
